FAERS Safety Report 21032967 (Version 1)
Quarter: 2022Q3

REPORT INFORMATION
  Report Type: Spontaneous
  Country: CN (occurrence: CN)
  Receive Date: 20220701
  Receipt Date: 20220701
  Transmission Date: 20221027
  Serious: Yes (Hospitalization, Other)
  Sender: FDA-Public Use
  Company Number: CN-SANOFI-01163609

PATIENT
  Sex: Male

DRUGS (2)
  1. DUPIXENT [Suspect]
     Active Substance: DUPILUMAB
     Indication: Dermatitis atopic
     Dosage: 600MG, 1X
     Route: 058
     Dates: start: 20220512, end: 20220512
  2. DUPIXENT [Suspect]
     Active Substance: DUPILUMAB
     Dosage: 300MG, QOW
     Route: 058
     Dates: start: 20220529

REACTIONS (6)
  - Skin injury [Unknown]
  - Haemorrhage [Unknown]
  - Spinal osteoarthritis [Unknown]
  - Arrhythmia [Unknown]
  - Extrasystoles [Unknown]
  - Fall [Unknown]

NARRATIVE: CASE EVENT DATE: 20220501
